FAERS Safety Report 9789619 (Version 1)
Quarter: 2013Q4

REPORT INFORMATION
  Report Type: Spontaneous
  Country: US (occurrence: US)
  Receive Date: 20131231
  Receipt Date: 20131231
  Transmission Date: 20140711
  Serious: Yes (Death)
  Sender: FDA-Public Use
  Company Number: US-BRISTOL-MYERS SQUIBB COMPANY-19941723

PATIENT
  Sex: 0

DRUGS (2)
  1. ELIQUIS [Suspect]
  2. XARELTO [Suspect]

REACTIONS (1)
  - Death [Fatal]
